FAERS Safety Report 7649946-1 (Version None)
Quarter: 2011Q3

REPORT INFORMATION
  Report Type: 
  Country: None (occurrence: None)
  Receive Date: 20110802
  Receipt Date: 20110728
  Transmission Date: 20111222
  Serious: Yes (Hospitalization)
  Sender: FDA-Public Use
  Company Number: US-BRISTOL-MYERS SQUIBB COMPANY-15591332

PATIENT
  Age: 62 Year
  Sex: Female

DRUGS (3)
  1. COUMADIN [Suspect]
     Indication: DEEP VEIN THROMBOSIS
     Route: 048
     Dates: start: 20110218, end: 20110501
  2. LOVENOX [Suspect]
     Dosage: DOSE INCREASED FROM 40 OR 60MG TO 80MG. 2011-2011,2011-ONGOING
     Dates: start: 20110101
  3. COUMADIN [Suspect]
     Indication: PULMONARY EMBOLISM
     Route: 048
     Dates: start: 20110218, end: 20110501

REACTIONS (2)
  - INTERNATIONAL NORMALISED RATIO DECREASED [None]
  - INJECTION SITE HAEMATOMA [None]
